FAERS Safety Report 4339193-3 (Version None)
Quarter: 2004Q2

REPORT INFORMATION
  Report Type: 
  Country: None (occurrence: None)
  Receive Date: 20040412
  Receipt Date: 20040329
  Transmission Date: 20050107
  Serious: Yes (Death, Hospitalization, Other)
  Sender: FDA-Public Use
  Company Number: NSADSS2003017731

PATIENT
  Age: 54 Year
  Sex: Male
  Weight: 78.0187 kg

DRUGS (7)
  1. REMICADE [Suspect]
     Indication: RHEUMATOID ARTHRITIS
     Dosage: 1 IN 1 AS NECESSARY, INTRAVENOUS
     Route: 042
     Dates: start: 20010214
  2. CIPRO [Suspect]
     Indication: INFECTION
  3. PREDNISONE [Suspect]
     Indication: RHEUMATOID ARTHRITIS
  4. ARAVA [Concomitant]
  5. ENBREL [Concomitant]
  6. METHOTREXATE [Concomitant]
  7. LORATADINE [Concomitant]

REACTIONS (45)
  - ABDOMINAL PAIN LOWER [None]
  - ABSCESS LIMB [None]
  - ACUTE LEUKAEMIA [None]
  - ACUTE MYELOID LEUKAEMIA [None]
  - ANAEMIA OF CHRONIC DISEASE [None]
  - ASTHENIA [None]
  - BALANITIS [None]
  - BIOPSY SKIN ABNORMAL [None]
  - BLOOD LACTATE DEHYDROGENASE INCREASED [None]
  - BURSITIS [None]
  - CELLULITIS [None]
  - COUGH [None]
  - CYST RUPTURE [None]
  - DERMATITIS EXFOLIATIVE [None]
  - DERMATOSIS [None]
  - DIABETES MELLITUS [None]
  - DRUG TOXICITY [None]
  - DRY MOUTH [None]
  - DYSPNOEA EXERTIONAL [None]
  - HAEMATOMA [None]
  - HAEMORRHOIDAL HAEMORRHAGE [None]
  - HEARING IMPAIRED [None]
  - KERATOCONJUNCTIVITIS SICCA [None]
  - LEUKAEMIA MONOCYTIC [None]
  - LOCALISED INFECTION [None]
  - LYMPHADENOPATHY [None]
  - MYELODYSPLASTIC SYNDROME [None]
  - NEUROPATHY PERIPHERAL [None]
  - OEDEMA PERIPHERAL [None]
  - PANCYTOPENIA [None]
  - PATHOGEN RESISTANCE [None]
  - PHARYNGOLARYNGEAL PAIN [None]
  - PLEURAL EFFUSION [None]
  - PSEUDOMONAS INFECTION [None]
  - REFRACTORY ANAEMIA WITH AN EXCESS OF BLASTS [None]
  - RHEUMATOID ARTHRITIS [None]
  - RHEUMATOID LUNG [None]
  - RHEUMATOID NODULE [None]
  - SPLENOMEGALY [None]
  - SYNOVITIS [None]
  - THERAPEUTIC RESPONSE DECREASED [None]
  - THROMBOPHLEBITIS SUPERFICIAL [None]
  - TINEA PEDIS [None]
  - TINNITUS [None]
  - WEIGHT DECREASED [None]
